FAERS Safety Report 18479904 (Version 1)
Quarter: 2020Q4

REPORT INFORMATION
  Report Type: Spontaneous
  Country: US (occurrence: US)
  Receive Date: 20201108
  Receipt Date: 20201108
  Transmission Date: 20210114
  Serious: Yes (Other)
  Sender: FDA-Public Use
  Company Number: None

PATIENT
  Age: 72 Year
  Sex: Female

DRUGS (2)
  1. GABAPENTIN 100MG [Concomitant]
     Active Substance: GABAPENTIN
     Dates: start: 20161031, end: 20201108
  2. ESOMEPRAZOLE MAGNESIUM CAPSULE [Suspect]
     Active Substance: ESOMEPRAZOLE MAGNESIUM
     Indication: GASTROOESOPHAGEAL REFLUX DISEASE
     Route: 048
     Dates: start: 20110822, end: 20201108

REACTIONS (3)
  - Product substitution issue [None]
  - Vertigo [None]
  - Vomiting [None]

NARRATIVE: CASE EVENT DATE: 20201103
